FAERS Safety Report 5908251-1 (Version None)
Quarter: 2008Q4

REPORT INFORMATION
  Report Type: 
  Country: None (occurrence: None)
  Receive Date: 20081006
  Receipt Date: 20081002
  Transmission Date: 20090506
  Serious: Yes (Death, Hospitalization, Other)
  Sender: FDA-Public Use
  Company Number: US-CELGENEUS-163-21880-08050868

PATIENT
  Sex: Male

DRUGS (6)
  1. REVLIMID [Suspect]
     Indication: MULTIPLE MYELOMA
     Route: 048
     Dates: start: 20080322, end: 20080326
  2. REVLIMID [Suspect]
     Dosage: UNKNOWN
     Route: 048
     Dates: start: 20080411, end: 20080418
  3. REVLIMID [Suspect]
     Dosage: 10MG
     Route: 048
     Dates: start: 20080514
  4. CYTOXAN [Concomitant]
     Indication: MULTIPLE MYELOMA
     Route: 065
  5. LOVENOX [Concomitant]
     Route: 065
  6. PREDNISONE [Concomitant]
     Indication: DRUG USE FOR UNKNOWN INDICATION
     Route: 065

REACTIONS (5)
  - HEPATIC MASS [None]
  - MULTIPLE MYELOMA [None]
  - PYREXIA [None]
  - THROMBOCYTOPENIA [None]
  - WHITE BLOOD CELL COUNT DECREASED [None]
